FAERS Safety Report 19071779 (Version 1)
Quarter: 2021Q1

REPORT INFORMATION
  Report Type: Spontaneous
  Country: AU (occurrence: AU)
  Receive Date: 20210330
  Receipt Date: 20210330
  Transmission Date: 20210420
  Serious: Yes (Other)
  Sender: FDA-Public Use
  Company Number: AU-SA-2021SA104507

PATIENT
  Sex: Female

DRUGS (1)
  1. CABLIVI [Suspect]
     Active Substance: CAPLACIZUMAB-YHDP
     Indication: THROMBOTIC THROMBOCYTOPENIC PURPURA
     Dosage: POWDER FOR INJECTION IN A SINGLE?DOSE VIAL
     Route: 065

REACTIONS (3)
  - Condition aggravated [Unknown]
  - Exposure during pregnancy [Unknown]
  - Thrombotic thrombocytopenic purpura [Unknown]
